FAERS Safety Report 8590648 (Version 7)
Quarter: 2013Q4

REPORT INFORMATION
  Report Type: Report from Study
  Country: JP (occurrence: JP)
  Receive Date: 20120601
  Receipt Date: 20131009
  Transmission Date: 20140711
  Serious: Yes (Hospitalization, Other)
  Sender: FDA-Public Use
  Company Number: JP-VERTEX PHARMACEUTICALS INC.-AE-2012-006653

PATIENT
  Age: 65 Year
  Sex: Male

DRUGS (17)
  1. VX-950 (TELAPREVIR) [Suspect]
     Indication: HEPATITIS C
     Dosage: 2250 MG, QD
     Route: 048
     Dates: start: 20120315, end: 20120516
  2. PEGINTRON [Suspect]
     Indication: CHRONIC HEPATITIS C
     Dosage: 1.27 ?G/KG, WEEK
     Route: 058
     Dates: start: 20120315, end: 20120321
  3. PEGINTRON [Suspect]
     Dosage: 0.8 ?G/KG, QW
     Route: 058
     Dates: start: 20120322, end: 20120418
  4. PEGINTRON [Suspect]
     Dosage: 0.95 ?G/KG, QW
     Route: 058
     Dates: start: 20120419, end: 20120501
  5. PEGINTRON [Suspect]
     Dosage: 1.1 ?G/KG, QW
     Route: 058
     Dates: start: 20120502, end: 20120509
  6. PEGINTRON [Suspect]
     Dosage: 1.41 ?G/KG, QW
     Route: 058
     Dates: start: 20120510
  7. PEGINTRON [Suspect]
     Dosage: 1.5 ?G/KG, QW
     Route: 058
  8. REBETOL [Suspect]
     Indication: CHRONIC HEPATITIS C
     Dosage: 800 MG, QD
     Route: 048
     Dates: start: 20120315, end: 20120323
  9. REBETOL [Suspect]
     Dosage: 600 MG, QD
     Route: 048
     Dates: start: 20120324, end: 20120325
  10. REBETOL [Suspect]
     Dosage: 200 MG, QD
     Route: 048
     Dates: start: 20120326, end: 20120627
  11. REBETOL [Suspect]
     Dosage: 400 MG, QD
     Route: 048
     Dates: start: 20120628, end: 20120808
  12. REBETOL [Suspect]
     Dosage: 600 MG, QD
     Route: 048
     Dates: start: 20120809
  13. URSO [Concomitant]
     Dosage: 900 MG, QD
     Route: 048
     Dates: start: 20110308, end: 20120314
  14. URSO [Concomitant]
     Dosage: UNK
  15. CALONAL [Concomitant]
     Dosage: 600 MG, QD
     Route: 048
     Dates: start: 20120315
  16. CALONAL [Concomitant]
     Dosage: 400 MG, QD
     Route: 048
  17. TAKEPRON [Concomitant]
     Dosage: 30 MG, QD
     Route: 048
     Dates: end: 20120704

REACTIONS (2)
  - Erythema multiforme [Recovered/Resolved]
  - Neutrophil count decreased [Recovered/Resolved]
